FAERS Safety Report 8510829-6 (Version None)
Quarter: 2012Q3

REPORT INFORMATION
  Report Type: 
  Country: None (occurrence: None)
  Receive Date: 20120716
  Receipt Date: 20120702
  Transmission Date: 20120928
  Serious: Yes (Death, Hospitalization)
  Sender: FDA-Public Use
  Company Number: US-RANBAXY-2012US-57710

PATIENT
  Sex: Male

DRUGS (2)
  1. SOTRET [Suspect]
     Indication: ACNE
     Dosage: UNKNOWN
     Route: 048
  2. AMNESTEEM [Suspect]
     Indication: PRODUCT USED FOR UNKNOWN INDICATION
     Dosage: UNKNOWN
     Route: 048

REACTIONS (11)
  - COLITIS ULCERATIVE [None]
  - IRRITABLE BOWEL SYNDROME [None]
  - GASTROINTESTINAL OEDEMA [None]
  - CROHN'S DISEASE [None]
  - GASTROINTESTINAL DISORDER [None]
  - COLITIS [None]
  - RECTAL HAEMORRHAGE [None]
  - DIARRHOEA [None]
  - ABDOMINAL PAIN [None]
  - ANAEMIA [None]
  - INFLAMMATORY BOWEL DISEASE [None]
